FAERS Safety Report 5375109-9 (Version None)
Quarter: 2007Q2

REPORT INFORMATION
  Report Type: 
  Country: None (occurrence: None)
  Receive Date: 20070629
  Receipt Date: 20060619
  Transmission Date: 20071010
  Serious: Yes (Other)
  Sender: FDA-Public Use
  Company Number: US-ASTRAZENECA-2006UW13089

PATIENT
  Sex: Female

DRUGS (1)
  1. TAMOXIFEN CITRATE [Suspect]
     Indication: BREAST CANCER FEMALE
     Route: 048
     Dates: start: 20000101, end: 20050101

REACTIONS (5)
  - BACK PAIN [None]
  - HAEMORRHAGE [None]
  - MENOPAUSE [None]
  - MUSCLE SPASMS [None]
  - POLYP [None]
